FAERS Safety Report 9031729 (Version 2)
Quarter: 2013Q1

REPORT INFORMATION
  Report Type: Report from Study
  Country: BR (occurrence: BR)
  Receive Date: 20130124
  Receipt Date: 20130322
  Transmission Date: 20140127
  Serious: Yes (Other)
  Sender: FDA-Public Use
  Company Number: BR-SANOFI-AVENTIS-2013SA001764

PATIENT
  Age: 75 Year
  Sex: Male
  Weight: 74 kg

DRUGS (5)
  1. LANTUS [Suspect]
     Indication: TYPE 2 DIABETES MELLITUS
     Dosage: START DATE: ABOUT 3 YEARS AGO
     Route: 058
  2. LANTUS [Suspect]
     Indication: TYPE 2 DIABETES MELLITUS
     Route: 058
  3. AUTOPEN 24 [Concomitant]
     Indication: DEVICE THERAPY
     Dosage: BLUE
  4. WARFARIN [Concomitant]
     Indication: ANTICOAGULANT THERAPY
     Dosage: STRENGTH: 25 MG
     Route: 048
     Dates: start: 2010
  5. ANCORON [Concomitant]
     Indication: ARRHYTHMIA
     Dosage: STRENGTH: 200 MG
     Route: 048
     Dates: start: 2010

REACTIONS (4)
  - Knee deformity [Unknown]
  - Arthralgia [Unknown]
  - Hyperglycaemia [Recovered/Resolved]
  - Drug ineffective [Unknown]
